FAERS Safety Report 7791624-2 (Version None)
Quarter: 2011Q3

REPORT INFORMATION
  Report Type: 
  Country: None (occurrence: None)
  Receive Date: 20110930
  Receipt Date: 20110930
  Transmission Date: 20111222
  Serious: Yes (Other)
  Sender: FDA-Public Use
  Company Number: None

PATIENT
  Age: 68 Year
  Sex: Female
  Weight: 72.7 kg

DRUGS (1)
  1. ADOXA 150MG ORDWAY PHARMACY (831/372-8085) #8275577) DAILY FOR 30 DAYS [Suspect]
     Indication: DERMATITIS
     Dosage: 150MG DAILY FOR 30 DAYS CAPSULES
     Route: 048
     Dates: start: 20110722, end: 20110820

REACTIONS (1)
  - TOOTH DISCOLOURATION [None]
